FAERS Safety Report 17164021 (Version 2)
Quarter: 2020Q1

REPORT INFORMATION
  Report Type: Spontaneous
  Country: US (occurrence: US)
  Receive Date: 20191217
  Receipt Date: 20200115
  Transmission Date: 20200409
  Serious: Yes (Other)
  Sender: FDA-Public Use
  Company Number: US-IPSEN BIOPHARMACEUTICALS, INC.-2019-25255

PATIENT
  Sex: Female

DRUGS (3)
  1. DYSPORT [Suspect]
     Active Substance: ABOBOTULINUMTOXINA
     Indication: OFF LABEL USE
  2. DYSPORT [Suspect]
     Active Substance: ABOBOTULINUMTOXINA
     Indication: SKIN WRINKLING
  3. DYSPORT [Suspect]
     Active Substance: ABOBOTULINUMTOXINA
     Indication: SKIN WRINKLING
     Dosage: DOSE NOT REPORTED
     Route: 061
     Dates: start: 201709, end: 201709

REACTIONS (6)
  - Infection [Unknown]
  - Burning mouth syndrome [Not Recovered/Not Resolved]
  - Incorrect route of product administration [Unknown]
  - Osteonecrosis of jaw [Recovered/Resolved]
  - Mouth injury [Unknown]
  - Off label use [Unknown]

NARRATIVE: CASE EVENT DATE: 201709
